FAERS Safety Report 5811161-1 (Version None)
Quarter: 2008Q3

REPORT INFORMATION
  Report Type: 
  Country: None (occurrence: None)
  Receive Date: 20080716
  Receipt Date: 20080709
  Transmission Date: 20090109
  Serious: Yes (Death)
  Sender: FDA-Public Use
  Company Number: FR-JNJFOC-20071204356

PATIENT
  Age: 50 Year
  Sex: Female

DRUGS (3)
  1. TAVANIC [Suspect]
     Indication: PNEUMONIA
     Route: 042
  2. TAVANIC [Suspect]
     Indication: SEPTIC SHOCK
     Route: 042
  3. ROCEPHIN [Concomitant]
     Indication: SEPTIC SHOCK
     Route: 065

REACTIONS (3)
  - DEATH [None]
  - HEPATITIS [None]
  - THROMBOCYTOPENIA [None]
